FAERS Safety Report 7437011-8 (Version None)
Quarter: 2011Q2

REPORT INFORMATION
  Report Type: 
  Country: None (occurrence: None)
  Receive Date: 20110415
  Receipt Date: 20110331
  Transmission Date: 20111010
  Serious: Yes (Other)
  Sender: FDA-Public Use
  Company Number: 20110283

PATIENT
  Age: 68 Year
  Sex: Female

DRUGS (1)
  1. DEXAMETHASONE SODIUM PHOSPHATE [Suspect]
     Indication: BURSITIS
     Dosage: DOSE TWICE WEEKLY
     Dates: start: 20110307, end: 20110328

REACTIONS (4)
  - PAIN IN EXTREMITY [None]
  - PAIN [None]
  - ARTHRALGIA [None]
  - CONDITION AGGRAVATED [None]
